FAERS Safety Report 25318567 (Version 1)
Quarter: 2025Q2

REPORT INFORMATION
  Report Type: Spontaneous
  Country: GB (occurrence: GB)
  Receive Date: 20250515
  Receipt Date: 20250515
  Transmission Date: 20250716
  Serious: Yes (Other)
  Sender: AUROBINDO
  Company Number: GB-MHRA-MED-202504281133245150-BMHYS

PATIENT
  Age: 68 Year
  Sex: Male
  Weight: 72 kg

DRUGS (2)
  1. POLYETHYLENE GLYCOLS [Interacting]
     Active Substance: POLYETHYLENE GLYCOLS
     Indication: Constipation
     Dosage: 2 DOSAGE FORM, TWO TIMES A DAY (TO SACHETS TWICE A DAY)
     Route: 065
     Dates: end: 20250416
  2. SINEMET [Suspect]
     Active Substance: CARBIDOPA\LEVODOPA
     Indication: Parkinson^s disease
     Route: 065
     Dates: start: 20201001, end: 202504

REACTIONS (3)
  - Drug interaction [Not Recovered/Not Resolved]
  - Constipation [Unknown]
  - Therapeutic product effect decreased [Unknown]
